FAERS Safety Report 4910179-0 (Version None)
Quarter: 2006Q1

REPORT INFORMATION
  Report Type: 
  Country: None (occurrence: None)
  Receive Date: 20060213
  Receipt Date: 20060207
  Transmission Date: 20060701
  Serious: Yes (Hospitalization)
  Sender: FDA-Public Use
  Company Number: PL-MERCK-0602POL00006

PATIENT
  Sex: Male

DRUGS (1)
  1. VIOXX [Suspect]
     Indication: ARTHRALGIA
     Route: 048
     Dates: start: 20001201, end: 20040801

REACTIONS (16)
  - ARTERIOSCLEROSIS [None]
  - ASTHENIA [None]
  - BALANCE DISORDER [None]
  - BRAIN STEM ISCHAEMIA [None]
  - CARDIOVASCULAR DISORDER [None]
  - DILATATION VENTRICULAR [None]
  - DIZZINESS [None]
  - DYSPNOEA [None]
  - HYPERTENSION [None]
  - LOSS OF CONSCIOUSNESS [None]
  - MOVEMENT DISORDER [None]
  - OSTEOARTHRITIS [None]
  - PALPITATIONS [None]
  - PARALYSIS FLACCID [None]
  - PARAPARESIS [None]
  - TINNITUS [None]
